FAERS Safety Report 9832766 (Version 1)
Quarter: 2014Q1

REPORT INFORMATION
  Report Type: Spontaneous
  Country: US (occurrence: US)
  Receive Date: 20140121
  Receipt Date: 20140121
  Transmission Date: 20141002
  Serious: Yes (Hospitalization)
  Sender: FDA-Public Use
  Company Number: US-GLAXOSMITHKLINE-A1056913A

PATIENT
  Age: 84 Year
  Sex: Female

DRUGS (3)
  1. COREG [Suspect]
     Indication: CARDIAC DISORDER
     Dosage: 12.5MG TWICE PER DAY
     Route: 048
  2. RYTHMOL [Suspect]
     Indication: PRODUCT USED FOR UNKNOWN INDICATION
     Dosage: 150MG THREE TIMES PER DAY
     Dates: start: 2012
  3. PROAIR HFA [Suspect]
     Indication: PRODUCT USED FOR UNKNOWN INDICATION
     Dosage: 2PUFF AS REQUIRED
     Route: 055
     Dates: start: 20131130, end: 20131220

REACTIONS (6)
  - Bronchitis [Recovering/Resolving]
  - Asthma [Recovering/Resolving]
  - Nasopharyngitis [Recovering/Resolving]
  - Wheezing [Recovering/Resolving]
  - Cough [Recovering/Resolving]
  - Pyrexia [Recovering/Resolving]
